FAERS Safety Report 25272778 (Version 1)
Quarter: 2025Q2

REPORT INFORMATION
  Report Type: Spontaneous
  Country: US (occurrence: None)
  Receive Date: 20250505
  Receipt Date: 20250505
  Transmission Date: 20250716
  Serious: Yes (Life-Threatening, Disabling, Other)
  Sender: FDA-CTU
  Company Number: None

PATIENT
  Age: 39 Year
  Sex: Male
  Weight: 78.75 kg

DRUGS (2)
  1. ZOLOFT [Suspect]
     Active Substance: SERTRALINE HYDROCHLORIDE
     Indication: Depression
     Route: 048
     Dates: start: 20250214, end: 20250219
  2. MELATONIN [Concomitant]
     Active Substance: MELATONIN

REACTIONS (13)
  - Sexual dysfunction [None]
  - Drug interaction [None]
  - Tinnitus [None]
  - Paraesthesia [None]
  - Headache [None]
  - Muscle tightness [None]
  - Muscular weakness [None]
  - Depersonalisation/derealisation disorder [None]
  - Paraesthesia [None]
  - Brain fog [None]
  - Disturbance in attention [None]
  - Emotional distress [None]
  - Suicidal ideation [None]

NARRATIVE: CASE EVENT DATE: 20250214
